FAERS Safety Report 10809223 (Version 1)
Quarter: 2015Q1

REPORT INFORMATION
  Report Type: Spontaneous
  Country: US (occurrence: None)
  Receive Date: 20150213
  Receipt Date: 20150213
  Transmission Date: 20150721
  Serious: Yes (Death)
  Sender: FDA-Public Use
  Company Number: None

PATIENT
  Age: 26 Year
  Sex: Male

DRUGS (1)
  1. METHADONE [Suspect]
     Active Substance: METHADONE HYDROCHLORIDE
     Indication: POSTOPERATIVE ANALGESIA
     Route: 048
     Dates: start: 20120201, end: 20130203

REACTIONS (4)
  - Death [None]
  - Cardiomegaly [None]
  - Hypopnoea [None]
  - Drug level decreased [None]

NARRATIVE: CASE EVENT DATE: 20120203
